FAERS Safety Report 8274168-3 (Version None)
Quarter: 2012Q2

REPORT INFORMATION
  Report Type: 
  Country: None (occurrence: None)
  Receive Date: 20120411
  Receipt Date: 20120402
  Transmission Date: 20120825
  Serious: Yes (Other)
  Sender: FDA-Public Use
  Company Number: FR-ASTRAZENECA-2012SE22659

PATIENT
  Sex: Male

DRUGS (3)
  1. QUETIAPINE FUMARATE [Suspect]
     Route: 048
  2. QUETIAPINE FUMARATE [Suspect]
     Route: 048
  3. BETABLOCKER [Concomitant]

REACTIONS (1)
  - URINARY RETENTION [None]
